FAERS Safety Report 8403809 (Version 7)
Quarter: 2013Q4

REPORT INFORMATION
  Report Type: Report from Study
  Country: BR (occurrence: BR)
  Receive Date: 20120213
  Receipt Date: 20131106
  Transmission Date: 20140711
  Serious: Yes (Hospitalization, Disabling)
  Sender: FDA-Public Use
  Company Number: BR-ELI_LILLY_AND_COMPANY-BR201202001139

PATIENT
  Age: 75 Year
  Sex: Female
  Weight: 46 kg

DRUGS (5)
  1. TERIPARATIDE [Suspect]
     Indication: OSTEOPOROSIS
     Dosage: 20 UG, QD
     Route: 058
     Dates: start: 201009
  2. SEROQUEL [Concomitant]
     Dosage: UNK, UNKNOWN
     Route: 065
  3. FRONTAL [Concomitant]
     Dosage: UNK, UNKNOWN
     Route: 065
  4. TYLEX [Concomitant]
     Dosage: UNK, UNKNOWN
     Route: 065
  5. TRAZODONE HYDROCHLORIDE [Concomitant]
     Dosage: UNK, UNKNOWN
     Route: 065

REACTIONS (6)
  - Cerebrovascular accident [Unknown]
  - Convulsion [Not Recovered/Not Resolved]
  - Hydrocephalus [Unknown]
  - Asthenia [Unknown]
  - Malaise [Unknown]
  - Bone pain [Unknown]
